FAERS Safety Report 22150676 (Version 1)
Quarter: 2023Q1

REPORT INFORMATION
  Report Type: Spontaneous
  Country: US (occurrence: US)
  Receive Date: 20230329
  Receipt Date: 20230329
  Transmission Date: 20230417
  Serious: Yes (Other)
  Sender: FDA-Public Use
  Company Number: US-JNJFOC-20230357567

PATIENT
  Sex: Male

DRUGS (1)
  1. XARELTO [Suspect]
     Active Substance: RIVAROXABAN
     Indication: Deep vein thrombosis
     Route: 048
     Dates: start: 2016, end: 2019

REACTIONS (5)
  - Paraparesis [Unknown]
  - Haemorrhage [Unknown]
  - Back pain [Unknown]
  - Paraesthesia [Unknown]
  - Eczema [Not Recovered/Not Resolved]
